FAERS Safety Report 17823936 (Version 1)
Quarter: 2020Q2

REPORT INFORMATION
  Report Type: Spontaneous
  Country: IT (occurrence: IT)
  Receive Date: 20200526
  Receipt Date: 20200526
  Transmission Date: 20200714
  Serious: Yes (Hospitalization)
  Sender: FDA-Public Use
  Company Number: IT-ACCORD-183323

PATIENT
  Age: 55 Year
  Sex: Female

DRUGS (3)
  1. TRIMETON [Concomitant]
     Active Substance: CHLORPHENIRAMINE MALEATE
     Dosage: STRENGTH:10 MG / 1 ML
     Route: 042
     Dates: start: 20200220, end: 20200220
  2. PACLITAXEL ACCORD HEALTHCARE ITALY [Suspect]
     Active Substance: PACLITAXEL
     Indication: PRODUCT USED FOR UNKNOWN INDICATION
     Route: 042
     Dates: start: 20200220, end: 20200220
  3. BENTELAN [Concomitant]
     Active Substance: BETAMETHASONE SODIUM PHOSPHATE
     Dosage: STRENGTH: 4 MG / 2 ML
     Route: 042
     Dates: start: 20200220, end: 20200220

REACTIONS (3)
  - Pruritus [Recovered/Resolved]
  - Erythema [Recovered/Resolved]
  - Bronchospasm [Recovered/Resolved]

NARRATIVE: CASE EVENT DATE: 20200220
